FAERS Safety Report 4834407-5 (Version None)
Quarter: 2005Q4

REPORT INFORMATION
  Report Type: 
  Country: None (occurrence: None)
  Receive Date: 20051110
  Receipt Date: 20051101
  Transmission Date: 20060501
  Serious: Yes (Other)
  Sender: FDA-Public Use
  Company Number: 2005123269

PATIENT
  Age: 62 Year
  Sex: Male
  Weight: 81.1939 kg

DRUGS (1)
  1. ZMAX [Suspect]
     Indication: MALAISE
     Dosage: (ONCE),
     Dates: start: 20050801, end: 20050801

REACTIONS (7)
  - ABDOMINAL PAIN UPPER [None]
  - DELIRIUM [None]
  - DIARRHOEA [None]
  - DIZZINESS [None]
  - FEELING ABNORMAL [None]
  - ORAL INTAKE REDUCED [None]
  - WEIGHT DECREASED [None]
